FAERS Safety Report 8151315-5 (Version None)
Quarter: 2012Q1

REPORT INFORMATION
  Report Type: 
  Country: None (occurrence: None)
  Receive Date: 20120220
  Receipt Date: 20120207
  Transmission Date: 20120608
  Serious: Yes (Disabling)
  Sender: FDA-Public Use
  Company Number: TR-MYLANLABS-2012S1003005

PATIENT
  Age: 25 Year
  Sex: Female

DRUGS (4)
  1. PAROXETINE [Suspect]
     Indication: DEPRESSION
     Dosage: 20-40 MG/DAY
     Route: 065
  2. MIRTAZAPINE [Concomitant]
     Dosage: 30 MG/DAY
     Route: 065
  3. PAROXETINE [Suspect]
     Indication: AVOIDANT PERSONALITY DISORDER
     Dosage: 20-40 MG/DAY
     Route: 065
  4. SULPIRIDE [Concomitant]
     Dosage: 50 MG/DAY
     Route: 065

REACTIONS (4)
  - DEPRESSION [None]
  - PARKINSON'S DISEASE [None]
  - AVOIDANT PERSONALITY DISORDER [None]
  - DISEASE RECURRENCE [None]
